FAERS Safety Report 24384853 (Version 1)
Quarter: 2024Q4

REPORT INFORMATION
  Report Type: Spontaneous
  Country: GB (occurrence: GB)
  Receive Date: 20241001
  Receipt Date: 20241001
  Transmission Date: 20250115
  Serious: Yes (Other)
  Sender: TEVA
  Company Number: None

PATIENT
  Age: 29 Year
  Sex: Female
  Weight: 65 kg

DRUGS (1)
  1. PROMETHAZINE [Suspect]
     Active Substance: PROMETHAZINE HYDROCHLORIDE
     Indication: Fatigue
     Route: 065
     Dates: start: 20240919, end: 20240919

REACTIONS (2)
  - Restless legs syndrome [Not Recovered/Not Resolved]
  - Agitation [Recovered/Resolved]
